FAERS Safety Report 10171710 (Version 1)
Quarter: 2014Q2

REPORT INFORMATION
  Report Type: Spontaneous
  Country: US (occurrence: None)
  Receive Date: 20140512
  Receipt Date: 20140512
  Transmission Date: 20141212
  Serious: Yes (Hospitalization)
  Sender: FDA-Public Use
  Company Number: UTC-048336

PATIENT
  Age: 74 Year
  Sex: Female
  Weight: 63.95 kg

DRUGS (4)
  1. TYVASO [Suspect]
     Indication: PULMONARY ARTERIAL HYPERTENSION
     Dosage: 54 TO 72 MICROGRAMS, 3 TO 4 TIMES DAILY
     Route: 055
     Dates: start: 20121010
  2. REVATIO [Concomitant]
  3. COUMADIN [Concomitant]
  4. TRACLEER [Concomitant]

REACTIONS (3)
  - Fluid retention [None]
  - Anaemia [None]
  - Blood pressure diastolic decreased [None]
